FAERS Safety Report 6702678-6 (Version None)
Quarter: 2010Q2

REPORT INFORMATION
  Report Type: 
  Country: None (occurrence: None)
  Receive Date: 20100429
  Receipt Date: 20100421
  Transmission Date: 20101027
  Serious: Yes (Death, Life-Threatening, Hospitalization, Other)
  Sender: FDA-Public Use
  Company Number: US-MILLENNIUM PHARMACEUTICALS, INC.-2010-02284

PATIENT
  Age: 57 Year
  Sex: Female
  Weight: 58.594 kg

DRUGS (8)
  1. VELCADE [Suspect]
     Indication: MULTIPLE MYELOMA
     Dosage: 1.9 MG, UNK
     Dates: start: 20100329, end: 20100329
  2. DEXAMETHASONE TAB [Suspect]
     Indication: MULTIPLE MYELOMA
     Dosage: 20 MG, UNK
     Dates: start: 20100329, end: 20100329
  3. CYCLOPHOSPHAMIDE [Suspect]
     Indication: MULTIPLE MYELOMA
  4. ETOPOSIDE [Suspect]
     Indication: MULTIPLE MYELOMA
  5. SYNTHROID [Concomitant]
     Indication: HYPOTHYROIDISM
     Dosage: UNK
     Dates: start: 20080101
  6. PARACETAMOL [Concomitant]
     Indication: PAIN
     Dosage: UNK
     Dates: start: 20091027
  7. VALACYCLOVIR [Concomitant]
     Indication: PROPHYLAXIS
     Dosage: UNK
     Dates: start: 20080101
  8. FERROUS GLUCONATE [Concomitant]
     Indication: SUPPLEMENTATION THERAPY
     Dosage: UNK
     Dates: start: 20080101

REACTIONS (16)
  - BACTERIAL TEST POSITIVE [None]
  - BLOOD CREATININE INCREASED [None]
  - DISEASE PROGRESSION [None]
  - HAEMOPTYSIS [None]
  - HYPOCALCAEMIA [None]
  - HYPOVOLAEMIA [None]
  - LOBAR PNEUMONIA [None]
  - MALIGNANT NEOPLASM PROGRESSION [None]
  - NEPHROPATHY [None]
  - NEUTROPENIA [None]
  - PLASMACYTOMA [None]
  - PLEURAL EFFUSION [None]
  - RESPIRATORY ACIDOSIS [None]
  - SEPSIS [None]
  - THROMBOCYTOPENIA [None]
  - VOMITING [None]
